FAERS Safety Report 8909881 (Version 2)
Quarter: 2012Q4

REPORT INFORMATION
  Report Type: 
  Country: ES (occurrence: ES)
  Receive Date: 20121115
  Receipt Date: 20121120
  Transmission Date: 20130627
  Serious: Yes (Other)
  Sender: FDA-Public Use
  Company Number: ES-PFIZER INC-2012282435

PATIENT

DRUGS (1)
  1. VESICARE [Suspect]
     Indication: OVERACTIVE BLADDER
     Dosage: UNK

REACTIONS (2)
  - Cognitive disorder [Unknown]
  - Constipation [Unknown]
